FAERS Safety Report 7433983-6 (Version None)
Quarter: 2011Q2

REPORT INFORMATION
  Report Type: 
  Country: None (occurrence: None)
  Receive Date: 20110420
  Receipt Date: 20110420
  Transmission Date: 20111010
  Serious: Yes (Other)
  Sender: FDA-Public Use
  Company Number: None

PATIENT
  Age: 56 Year
  Sex: Female
  Weight: 51.2565 kg

DRUGS (1)
  1. AVELOX [Suspect]
     Indication: SINUSITIS
     Dosage: 1 TABLET 1 DAILY PO
     Route: 048
     Dates: start: 20110120, end: 20110124

REACTIONS (2)
  - MUSCULOSKELETAL DISCOMFORT [None]
  - FUNGAL INFECTION [None]
